FAERS Safety Report 13131831 (Version 7)
Quarter: 2017Q4

REPORT INFORMATION
  Report Type: Report from Study
  Country: US (occurrence: US)
  Receive Date: 20170119
  Receipt Date: 20171103
  Transmission Date: 20180320
  Serious: Yes (Hospitalization, Other)
  Sender: FDA-Public Use
  Company Number: US-ACTELION-A-NJ2016-146629

PATIENT
  Age: 48 Year
  Sex: Female
  Weight: 109.75 kg

DRUGS (9)
  1. UPTRAVI [Suspect]
     Active Substance: SELEXIPAG
     Dosage: 200 MCG, TID
     Route: 048
  2. VELETRI [Suspect]
     Active Substance: EPOPROSTENOL
     Dosage: 12 NG/KG, PER MIN
     Route: 042
     Dates: end: 201610
  3. LETAIRIS [Concomitant]
     Active Substance: AMBRISENTAN
  4. UPTRAVI [Suspect]
     Active Substance: SELEXIPAG
     Dosage: 600 MCG, BID
     Route: 048
  5. VELETRI [Suspect]
     Active Substance: EPOPROSTENOL
     Indication: PULMONARY ARTERIAL HYPERTENSION
     Dosage: UNK
     Route: 042
     Dates: start: 20130916
  6. UPTRAVI [Suspect]
     Active Substance: SELEXIPAG
     Indication: PULMONARY ARTERIAL HYPERTENSION
     Dosage: 1200 MCG, BID
     Route: 048
  7. UPTRAVI [Suspect]
     Active Substance: SELEXIPAG
     Dosage: 800 MCG, BID
     Route: 048
     Dates: start: 20161111
  8. UPTRAVI [Suspect]
     Active Substance: SELEXIPAG
     Dosage: 1600 UNK, UNK
     Route: 048
  9. SILDENAFIL. [Concomitant]
     Active Substance: SILDENAFIL

REACTIONS (35)
  - Head injury [Unknown]
  - Myalgia [Unknown]
  - Fall [Unknown]
  - Swelling face [Unknown]
  - Stress [Unknown]
  - Diarrhoea [Unknown]
  - Micturition disorder [Unknown]
  - Migraine [Unknown]
  - Blood pressure increased [Unknown]
  - Rash pruritic [Recovering/Resolving]
  - Weight decreased [Unknown]
  - Nausea [Unknown]
  - Fatigue [Unknown]
  - Flushing [Unknown]
  - Eye swelling [Unknown]
  - Headache [Unknown]
  - Transient ischaemic attack [Unknown]
  - Systemic lupus erythematosus rash [Recovering/Resolving]
  - Exercise tolerance decreased [Unknown]
  - Extrasystoles [Unknown]
  - Loss of consciousness [Unknown]
  - Back pain [Unknown]
  - Renal failure [Unknown]
  - Incorrect dose administered [Unknown]
  - Cough [Unknown]
  - Oedema [Unknown]
  - Dyspnoea [Unknown]
  - Amnesia [Unknown]
  - Vasodilatation [Unknown]
  - Palpitations [Unknown]
  - Laceration [Unknown]
  - Blood urine present [Unknown]
  - Treatment noncompliance [Unknown]
  - Dizziness [Unknown]
  - Dyspnoea exertional [Unknown]

NARRATIVE: CASE EVENT DATE: 20170214
